FAERS Safety Report 6579535-1 (Version None)
Quarter: 2010Q1

REPORT INFORMATION
  Report Type: 
  Country: None (occurrence: None)
  Receive Date: 20100212
  Receipt Date: 20100203
  Transmission Date: 20100710
  Serious: Yes (Other)
  Sender: FDA-Public Use
  Company Number: US-PFIZER INC-2009306314

PATIENT
  Sex: Female

DRUGS (1)
  1. NEURONTIN [Suspect]
     Dosage: UNK
     Dates: start: 19970101

REACTIONS (6)
  - DEPRESSION [None]
  - FEELING JITTERY [None]
  - HIP SURGERY [None]
  - PAIN [None]
  - SUICIDAL IDEATION [None]
  - SURGERY [None]
